FAERS Safety Report 14308686 (Version 1)
Quarter: 2017Q4

REPORT INFORMATION
  Report Type: Spontaneous
  Country: ES (occurrence: ES)
  Receive Date: 20171220
  Receipt Date: 20171220
  Transmission Date: 20180321
  Serious: Yes (Hospitalization)
  Sender: FDA-Public Use
  Company Number: PHHY2017ES190501

PATIENT
  Age: 86 Year
  Sex: Male
  Weight: 86 kg

DRUGS (2)
  1. CARDURAN NEO [Interacting]
     Active Substance: DOXAZOSIN MESYLATE
     Indication: HYPERTENSION
     Dosage: 1/24 HORAS (1 DAY)
     Route: 048
     Dates: start: 2015, end: 201711
  2. EXFORGE HCT [Suspect]
     Active Substance: AMLODIPINE BESYLATE\HYDROCHLOROTHIAZIDE\VALSARTAN
     Indication: HYPERTENSION
     Dosage: 1/24 HORAS(1 DAY, 1 UG/L)
     Route: 048
     Dates: start: 20170707

REACTIONS (2)
  - Hip fracture [Recovering/Resolving]
  - Fall [Recovering/Resolving]

NARRATIVE: CASE EVENT DATE: 20171103
